FAERS Safety Report 8832232 (Version 4)
Quarter: 2013Q4

REPORT INFORMATION
  Report Type: Report from Study
  Country: US (occurrence: US)
  Receive Date: 20121009
  Receipt Date: 20131009
  Transmission Date: 20140711
  Serious: Yes (Life-Threatening, Hospitalization)
  Sender: FDA-Public Use
  Company Number: US-US-EMD SERONO, INC.-7166324

PATIENT
  Age: 73 Year
  Sex: Female
  Weight: 73 kg

DRUGS (2)
  1. REBIF [Suspect]
     Indication: MULTIPLE SCLEROSIS
     Route: 058
     Dates: start: 20050407
  2. REBIF [Suspect]
     Route: 058
     Dates: start: 20120926

REACTIONS (12)
  - Kidney infection [Recovered/Resolved]
  - Renal failure [Recovered/Resolved]
  - Sepsis [Recovered/Resolved]
  - Urinary tract infection [Recovered/Resolved]
  - Clostridium difficile infection [Recovered/Resolved]
  - Adverse drug reaction [Recovered/Resolved]
  - Diarrhoea [Recovered/Resolved]
  - Hemiparesis [Not Recovered/Not Resolved]
  - Local swelling [Unknown]
  - Alopecia [Not Recovered/Not Resolved]
  - Pain [Not Recovered/Not Resolved]
  - Gait disturbance [Recovering/Resolving]
